FAERS Safety Report 6181457-5 (Version None)
Quarter: 2009Q2

REPORT INFORMATION
  Report Type: 
  Country: None (occurrence: None)
  Receive Date: 20090506
  Receipt Date: 20090430
  Transmission Date: 20091009
  Serious: Yes (Hospitalization, Other)
  Sender: FDA-Public Use
  Company Number: US-ASTRAZENECA-2009UW11061

PATIENT
  Age: 52 Year
  Sex: Male
  Weight: 104.3 kg

DRUGS (5)
  1. CRESTOR [Suspect]
     Route: 048
     Dates: start: 20040101
  2. NEXIUM [Concomitant]
     Route: 048
  3. ZYRTEC [Concomitant]
  4. AMBIEN [Concomitant]
  5. WATER PILL [Concomitant]

REACTIONS (3)
  - CHOLECYSTECTOMY [None]
  - HEPATIC ENZYME INCREASED [None]
  - MYALGIA [None]
